FAERS Safety Report 8245092-7 (Version None)
Quarter: 2012Q1

REPORT INFORMATION
  Report Type: 
  Country: None (occurrence: None)
  Receive Date: 20120329
  Receipt Date: 20120328
  Transmission Date: 20120608
  Serious: Yes (Other)
  Sender: FDA-Public Use
  Company Number: US-GLAXOSMITHKLINE-A0971475A

PATIENT
  Age: 70 Year
  Sex: Female

DRUGS (4)
  1. FLUOCINONIDE [Suspect]
     Route: 061
  2. TRIAMCINOLONE ACETONIDE [Concomitant]
     Route: 061
  3. MICONAZOLE NITRATE [Suspect]
     Route: 061
  4. OXISTAT [Suspect]
     Route: 061

REACTIONS (1)
  - SKIN ATROPHY [None]
